FAERS Safety Report 12659453 (Version 1)
Quarter: 2016Q3

REPORT INFORMATION
  Report Type: Spontaneous
  Country: US (occurrence: US)
  Receive Date: 20160817
  Receipt Date: 20160817
  Transmission Date: 20161109
  Serious: Yes (Death)
  Sender: FDA-Public Use
  Company Number: US-BIOGEN-2016BI00278191

PATIENT
  Age: 62 Year
  Sex: Female

DRUGS (2)
  1. BACLOFEN PUMP [Concomitant]
     Active Substance: BACLOFEN
     Indication: PRODUCT USED FOR UNKNOWN INDICATION
     Route: 065
  2. TECFIDERA [Suspect]
     Active Substance: DIMETHYL FUMARATE
     Indication: MULTIPLE SCLEROSIS
     Route: 065
     Dates: start: 20131120, end: 2014

REACTIONS (6)
  - Hypertension [Unknown]
  - Musculoskeletal disorder [Recovered/Resolved]
  - Primary progressive multiple sclerosis [Fatal]
  - Pain [Unknown]
  - Cerebrovascular accident [Fatal]
  - Drug ineffective [Unknown]

NARRATIVE: CASE EVENT DATE: 20160731
